FAERS Safety Report 6801488-9 (Version None)
Quarter: 2010Q2

REPORT INFORMATION
  Report Type: 
  Country: None (occurrence: None)
  Receive Date: 20100629
  Receipt Date: 20100616
  Transmission Date: 20101027
  Serious: Yes (Death, Hospitalization)
  Sender: FDA-Public Use
  Company Number: FR-ROCHE-703124

PATIENT
  Sex: Male
  Weight: 100 kg

DRUGS (24)
  1. RIVOTRIL [Suspect]
     Dosage: CUMULATIVE DOSE: 3 MG
     Route: 042
     Dates: start: 20090829, end: 20090831
  2. RITUXIMAB [Suspect]
     Dosage: LAST DOSE PRIOR TO SAE 19 MARCH 2009. TEMPORARILY INTURRUPTED
     Route: 042
     Dates: start: 20090319, end: 20090407
  3. RITUXIMAB [Suspect]
     Dosage: LAST DOSE PRIOR TO SAE: 14 MAY 2009.  CUMULATIVE DOSE 1580 MG
     Route: 042
     Dates: end: 20090514
  4. METHOTREXATE [Suspect]
     Dosage: LAST DOSE PRIOR TO SAE 19 MARCH 2009
     Route: 042
     Dates: start: 20090319
  5. METHOTREXATE [Suspect]
     Dosage: LAST DOSE PRIOR TO SAE: 07 APRIL 2009.  CUMULATIVE DOSE: 12600 MG
     Route: 042
     Dates: start: 20090407, end: 20090407
  6. METHOTREXATE [Suspect]
     Dosage: LAST DOSE PRIOR TO SAE: 14 MAY 2009. CUMULATIVE DOSE: 12660 MG
     Route: 042
  7. CARMUSTINE [Suspect]
     Dosage: LAST DOSE PRIOR TO SAE 21 MARCH 2009. TEMPORARILY INTURRUPTED
     Route: 042
     Dates: start: 20090321, end: 20090407
  8. CARMUSTINE [Suspect]
     Dosage: LAST DOSE PRIOR TO SAE: 16 MAY 2009. CUMULATIVE DOSE : 419 MG
     Route: 042
  9. ETOPOSIDE [Suspect]
     Dosage: LAST DOSE PRIOR TO SAE 20 MARCH 2009. INTERRUPTED ON 07 APRIL 2009.
     Route: 042
     Dates: start: 20090320, end: 20090320
  10. ETOPOSIDE [Suspect]
     Dosage: LAST DOSE PRIOR TO SAE: 15 MAY 2009. CUMULATIVE DOSE: 420 MG
     Route: 042
     Dates: end: 20090515
  11. PREDNISONE [Suspect]
     Dosage: LAST DOSE PRIOR TO SAE 23 MARCH 2009
     Route: 048
     Dates: start: 20090319, end: 20090323
  12. PREDNISONE [Suspect]
     Dosage: DRUG REPORTED AS CORTANCYL
     Route: 048
     Dates: end: 20090417
  13. PREDNISONE [Suspect]
     Dosage: CUMULATIVE DOSE: 1712 MG
     Route: 048
     Dates: start: 20090514, end: 20090518
  14. THIOTEPA [Suspect]
     Dosage: CUMULATIVE DOSE: 1500 MG
     Route: 042
     Dates: start: 20090825, end: 20090827
  15. BUSULFAN [Suspect]
     Dosage: CUMULATIVE DOSE: 792 MG
     Route: 042
     Dates: start: 20090828, end: 20090830
  16. CYCLOPHOSPHAMIDE [Suspect]
     Dosage: CUMULATIVE DOSE: 12000 MG
     Route: 042
     Dates: start: 20090831, end: 20090901
  17. UROMITEXAN [Suspect]
     Dosage: CUMULATIVE DOSE: 9600 MG
     Route: 042
     Dates: start: 20090831, end: 20090901
  18. EQUANIL [Concomitant]
     Dates: start: 20090418
  19. CALCITE D [Concomitant]
     Dosage: DRUG: CALCIT D3
     Dates: start: 20090418
  20. LOVENOX [Concomitant]
     Indication: THROMBOSIS PROPHYLAXIS
     Dosage: TOTAL DAILY DOSE: 0.4
  21. COZAAR [Concomitant]
  22. DIFFU K [Concomitant]
  23. NEXIUM [Concomitant]
  24. CALCIDIA [Concomitant]
     Dosage: TOTAL DAILY DOSE: 1 POUCH

REACTIONS (3)
  - PNEUMOCYSTIS JIROVECI PNEUMONIA [None]
  - SEPTIC SHOCK [None]
  - UROSEPSIS [None]
